FAERS Safety Report 5199620-9 (Version None)
Quarter: 2007Q1

REPORT INFORMATION
  Report Type: 
  Country: None (occurrence: None)
  Receive Date: 20070102
  Receipt Date: 20070102
  Transmission Date: 20070707
  Serious: Yes (Other)
  Sender: FDA-Public Use
  Company Number: None

PATIENT
  Sex: Female
  Weight: 61.2356 kg

DRUGS (1)
  1. LYRICA [Suspect]
     Indication: HEADACHE
     Dosage: 1 3 TIMES PER DAY PO
     Route: 048

REACTIONS (9)
  - ANXIETY [None]
  - CHEST DISCOMFORT [None]
  - DIARRHOEA [None]
  - DRUG WITHDRAWAL SYNDROME [None]
  - DYSPNOEA [None]
  - GASTRIC DISORDER [None]
  - INSOMNIA [None]
  - LOSS OF CONSCIOUSNESS [None]
  - MYALGIA [None]
